FAERS Safety Report 20603433 (Version 1)
Quarter: 2022Q1

REPORT INFORMATION
  Report Type: Spontaneous
  Country: US (occurrence: None)
  Receive Date: 20220316
  Receipt Date: 20220316
  Transmission Date: 20220423
  Serious: Yes (Hospitalization)
  Sender: FDA-Public Use
  Company Number: None

PATIENT
  Age: 3 Year
  Sex: Male
  Weight: 15.3 kg

DRUGS (3)
  1. CYCLOPHOSPHAMIDE [Suspect]
     Active Substance: CYCLOPHOSPHAMIDE
     Dates: end: 20220125
  2. MESNA [Suspect]
     Active Substance: MESNA
     Dates: end: 20220125
  3. THIOTEPA [Suspect]
     Active Substance: THIOTEPA
     Dates: end: 20220125

REACTIONS (7)
  - Thrombotic microangiopathy [None]
  - Hypertension [None]
  - Pulmonary alveolar haemorrhage [None]
  - Acute kidney injury [None]
  - Fluid imbalance [None]
  - Pneumonia [None]
  - Hypoxia [None]

NARRATIVE: CASE EVENT DATE: 20220309
